FAERS Safety Report 24628915 (Version 1)
Quarter: 2024Q4

REPORT INFORMATION
  Report Type: Spontaneous
  Country: PL (occurrence: PL)
  Receive Date: 20241118
  Receipt Date: 20241118
  Transmission Date: 20250114
  Serious: Yes (Hospitalization, Other)
  Sender: BRISTOL-MYERS SQUIBB COMPANY
  Company Number: PL-BRISTOL-MYERS SQUIBB COMPANY-2024-176635

PATIENT
  Age: 68 Year
  Sex: Female

DRUGS (4)
  1. NIVOLUMAB [Suspect]
     Active Substance: NIVOLUMAB
     Indication: Renal cancer
     Dosage: DOSE : NIVO 3MG/KG IPI- 1MG/KG;     FREQ : EVERY 3 WEEKS, SEE NOTES
     Route: 042
     Dates: start: 20230904
  2. NIVOLUMAB [Suspect]
     Active Substance: NIVOLUMAB
     Dosage: DOSE : NIVO 3MG/KG IPI- 1MG/KG;     FREQ : EVERY 3 WEEKS, SEE NOTES
     Route: 042
     Dates: start: 20231121
  3. IPILIMUMAB [Suspect]
     Active Substance: IPILIMUMAB
     Indication: Renal cancer
     Dosage: DOSE : NIVO 3MG/KG IPI- 1MG/KG;     FREQ : EVERY 3 WEEKS, SEE NOTES
     Route: 042
     Dates: start: 20230904
  4. CLEMASTINUM [CLEMASTINE] [Concomitant]
     Indication: Product used for unknown indication
     Dates: start: 20231121

REACTIONS (9)
  - Pruritus [Recovered/Resolved]
  - General physical health deterioration [Unknown]
  - Asthenia [Recovered/Resolved]
  - Dizziness [Recovered/Resolved]
  - Decreased appetite [Unknown]
  - Pyrexia [Recovered/Resolved]
  - Hyponatraemia [Unknown]
  - Pericarditis [Unknown]
  - Headache [Unknown]

NARRATIVE: CASE EVENT DATE: 20230901
